FAERS Safety Report 8920915 (Version 1)
Quarter: 2012Q4

REPORT INFORMATION
  Report Type: 
  Country: BE (occurrence: BE)
  Receive Date: 20121121
  Receipt Date: 20121121
  Transmission Date: 20130627
  Serious: Yes (Other)
  Sender: FDA-Public Use
  Company Number: BE-GLAXOSMITHKLINE-B0828428A

PATIENT
  Sex: Male
  Weight: 69 kg

DRUGS (2)
  1. TROBALT [Suspect]
     Indication: EPILEPSY
     Route: 065
     Dates: start: 20120601, end: 201209
  2. KEPPRA [Concomitant]
     Indication: EPILEPSY
     Dosage: 2000MG per day

REACTIONS (2)
  - Dysuria [Recovered/Resolved]
  - Abdominal pain lower [Recovered/Resolved]
